FAERS Safety Report 7473566-5 (Version None)
Quarter: 2011Q1

REPORT INFORMATION
  Report Type: 
  Country: None (occurrence: None)
  Receive Date: 20110302
  Receipt Date: 20101004
  Transmission Date: 20110831
  Serious: Yes (Hospitalization, Other)
  Sender: FDA-Public Use
  Company Number: 163-21880-10081529

PATIENT
  Age: 66 Year
  Sex: Female
  Weight: 106.1417 kg

DRUGS (28)
  1. MULTIVITAMIN [Concomitant]
  2. SINEMET [Concomitant]
  3. FLUTICASONE-SALMETEROL (GALENIC/FLUTICASONE/SALMETEROL) [Concomitant]
  4. IMDUR [Concomitant]
  5. ASPIRIN [Concomitant]
  6. MIRALAX [Concomitant]
  7. REVLIMID [Suspect]
     Indication: MULTIPLE MYELOMA
     Dosage: 25 MG, DAILY FOR 21 DAYS, PO
     Route: 048
     Dates: start: 20100501, end: 20100801
  8. REVLIMID [Suspect]
     Indication: MULTIPLE MYELOMA
     Dosage: 25 MG, DAILY FOR 21 DAYS, PO
     Route: 048
     Dates: start: 20070626, end: 20070801
  9. REVLIMID [Suspect]
     Indication: MULTIPLE MYELOMA
     Dosage: 25 MG, DAILY FOR 21 DAYS, PO
     Route: 048
     Dates: start: 20071001, end: 20080901
  10. PROMETHAZINE [Concomitant]
  11. LANOLIN-OXYQUIN-PETROLEUM (LANOLIN W/MINERAL OIL/PETROLATUM) [Concomitant]
  12. NEXIUM [Concomitant]
  13. ACETAMINOPHEN [Concomitant]
  14. BLOOD (BLOOD AND RELATED PRODUCTS) [Concomitant]
  15. FENTANYL [Concomitant]
  16. METOPROLOL SUCCINATE [Concomitant]
  17. DULCOLAX [Concomitant]
  18. PREDNISONE [Concomitant]
  19. SYNTHROID [Concomitant]
  20. MAGNESIUM HYDROXIDE TAB [Concomitant]
  21. FUROSEMIDE [Concomitant]
  22. XANAX [Concomitant]
  23. TRYSPIN-BALSAM-CASTOR OIL (GRANULEX) [Concomitant]
  24. HYDROIXYZINE HCL (HYDROXYZINE HYDROCHLORIDE) [Concomitant]
  25. HYDROCODONE-ACETAMINOPHEN (PROCET /USA/) [Concomitant]
  26. ALBUTEROL [Concomitant]
  27. STOOL SOFTENER (DOCUSATE SODIUM) [Concomitant]
  28. KLOR-CON [Concomitant]

REACTIONS (8)
  - ECCHYMOSIS [None]
  - PNEUMONIA [None]
  - FULL BLOOD COUNT DECREASED [None]
  - HYPOXIA [None]
  - RESPIRATORY FAILURE [None]
  - SEPSIS [None]
  - TIBIA FRACTURE [None]
  - BLOOD CREATININE INCREASED [None]
